FAERS Safety Report 25240453 (Version 1)
Quarter: 2025Q2

REPORT INFORMATION
  Report Type: Spontaneous
  Country: CH (occurrence: CH)
  Receive Date: 20250425
  Receipt Date: 20250425
  Transmission Date: 20250717
  Serious: Yes (Other)
  Sender: PURDUE
  Company Number: CH-PURDUE-USA-2025-0316976

PATIENT
  Age: 68 Year
  Sex: Male

DRUGS (16)
  1. MORPHINE [Suspect]
     Active Substance: MORPHINE
     Indication: Product used for unknown indication
     Route: 065
     Dates: end: 20250310
  2. ATORVASTATIN [Suspect]
     Active Substance: ATORVASTATIN
     Indication: Product used for unknown indication
     Route: 065
     Dates: start: 20250224, end: 20250310
  3. BACTRIM [Suspect]
     Active Substance: SULFAMETHOXAZOLE\TRIMETHOPRIM
     Indication: Product used for unknown indication
     Route: 065
     Dates: start: 20250304, end: 20250309
  4. ENOXAPARIN SODIUM [Suspect]
     Active Substance: ENOXAPARIN SODIUM
     Indication: Product used for unknown indication
     Route: 065
     Dates: end: 20250310
  5. AMLODIPINE [Suspect]
     Active Substance: AMLODIPINE BESYLATE
     Indication: Product used for unknown indication
     Route: 065
     Dates: end: 20250310
  6. JANUMET [Suspect]
     Active Substance: METFORMIN HYDROCHLORIDE\SITAGLIPTIN PHOSPHATE
     Indication: Product used for unknown indication
     Route: 065
     Dates: end: 20250309
  7. TORSEMIDE [Suspect]
     Active Substance: TORSEMIDE
     Indication: Product used for unknown indication
     Route: 065
     Dates: end: 20250310
  8. MORPHINE HYDROCHLORIDE [Suspect]
     Active Substance: MORPHINE HYDROCHLORIDE
     Indication: Product used for unknown indication
     Route: 065
     Dates: end: 20250310
  9. CALCIUM\CHOLECALCIFEROL [Concomitant]
     Active Substance: CALCIUM\CHOLECALCIFEROL
     Indication: Product used for unknown indication
     Route: 065
  10. DOXYCYCLINE HYDROCHLORIDE [Concomitant]
     Active Substance: DOXYCYCLINE HYDROCHLORIDE
     Indication: Product used for unknown indication
     Route: 065
  11. ESOMEPRAZOLE [Concomitant]
     Active Substance: ESOMEPRAZOLE
     Indication: Product used for unknown indication
     Route: 065
  12. EZETIMIBE DCI [Concomitant]
     Indication: Product used for unknown indication
     Route: 065
  13. MELATONIN [Concomitant]
     Active Substance: MELATONIN
     Indication: Product used for unknown indication
     Route: 065
  14. PREGABALIN [Concomitant]
     Active Substance: PREGABALIN
     Indication: Product used for unknown indication
     Route: 065
     Dates: start: 20250226, end: 20250310
  15. TAMSULOSIN [Concomitant]
     Active Substance: TAMSULOSIN
     Indication: Product used for unknown indication
     Route: 065
     Dates: end: 20250310
  16. ZOLPIDEM TARTRATE [Concomitant]
     Active Substance: ZOLPIDEM TARTRATE
     Indication: Product used for unknown indication
     Route: 065

REACTIONS (2)
  - Cholestatic liver injury [Recovering/Resolving]
  - Condition aggravated [Recovering/Resolving]

NARRATIVE: CASE EVENT DATE: 20250311
